FAERS Safety Report 12473486 (Version 1)
Quarter: 2016Q2

REPORT INFORMATION
  Report Type: Report from Study
  Country: DK (occurrence: DK)
  Receive Date: 20160616
  Receipt Date: 20160616
  Transmission Date: 20160815
  Serious: Yes (Death)
  Sender: FDA-Public Use
  Company Number: DK-MYLANLABS-2016M1025025

PATIENT

DRUGS (3)
  1. BLEOMYCIN [Suspect]
     Active Substance: BLEOMYCIN SULFATE
     Indication: TESTICULAR GERM CELL CANCER
     Route: 065
     Dates: start: 19841219
  2. CISPLATIN. [Suspect]
     Active Substance: CISPLATIN
     Indication: TESTICULAR GERM CELL CANCER
     Route: 065
     Dates: start: 19841219
  3. ETOPOSIDE. [Suspect]
     Active Substance: ETOPOSIDE
     Indication: TESTICULAR GERM CELL CANCER
     Route: 065
     Dates: start: 19841219

REACTIONS (1)
  - Pulmonary fibrosis [Fatal]
